FAERS Safety Report 20431976 (Version 2)
Quarter: 2022Q1

REPORT INFORMATION
  Report Type: Spontaneous
  Country: DE (occurrence: DE)
  Receive Date: 20220204
  Receipt Date: 20220315
  Transmission Date: 20220424
  Serious: Yes (Other)
  Sender: FDA-Public Use
  Company Number: DE-Accord-250797

PATIENT
  Age: 62 Year
  Sex: Female
  Weight: 76.4 kg

DRUGS (4)
  1. GEMTUZUMAB OZOGAMICIN [Suspect]
     Active Substance: GEMTUZUMAB OZOGAMICIN
     Dosage: 5 MG
     Route: 042
     Dates: start: 20211215
  2. DAUNORUBICIN HYDROCHLORIDE [Suspect]
     Active Substance: DAUNORUBICIN HYDROCHLORIDE
     Dosage: 60 MG/M2
     Route: 042
     Dates: start: 20211215, end: 20211217
  3. CYTARABINE [Suspect]
     Active Substance: CYTARABINE
     Dosage: 200 MG/M2
     Route: 042
     Dates: start: 20211215, end: 20211219
  4. PIPERACILLIN SODIUM\TAZOBACTAM SODIUM [Concomitant]
     Active Substance: PIPERACILLIN SODIUM\TAZOBACTAM SODIUM
     Dosage: UNK
     Dates: start: 20211218

REACTIONS (4)
  - Febrile neutropenia [Recovered/Resolved]
  - Platelet count decreased [Unknown]
  - White blood cell count decreased [Unknown]
  - Haemoglobin decreased [Unknown]

NARRATIVE: CASE EVENT DATE: 20211219
